FAERS Safety Report 21010944 (Version 1)
Quarter: 2022Q2

REPORT INFORMATION
  Report Type: Spontaneous
  Country: CN (occurrence: CN)
  Receive Date: 20220627
  Receipt Date: 20220627
  Transmission Date: 20220721
  Serious: Yes (Other)
  Sender: FDA-Public Use
  Company Number: CN-BAYER-2022A087642

PATIENT
  Age: 52 Year
  Sex: Male
  Weight: 95.4 kg

DRUGS (7)
  1. STIVARGA [Suspect]
     Active Substance: REGORAFENIB
     Indication: Rectal cancer
     Dosage: 80 MG, QD
     Route: 048
     Dates: start: 20220422, end: 20220512
  2. IRINOTECAN [Concomitant]
     Active Substance: IRINOTECAN
     Indication: Rectal cancer
     Dosage: 380 MG, ONCE
     Dates: start: 20220210, end: 20220210
  3. IRINOTECAN [Concomitant]
     Active Substance: IRINOTECAN
     Indication: Rectal cancer
     Dosage: 380 MG, ONCE
     Dates: start: 20220225, end: 20220225
  4. IRINOTECAN [Concomitant]
     Active Substance: IRINOTECAN
     Indication: Rectal cancer
     Dosage: 380 MG, ONCE
     Dates: start: 20220311, end: 20220311
  5. IRINOTECAN [Concomitant]
     Active Substance: IRINOTECAN
     Indication: Rectal cancer
     Dosage: 380 MG, ONCE
     Dates: start: 20220402, end: 20220402
  6. IRINOTECAN [Concomitant]
     Active Substance: IRINOTECAN
     Indication: Rectal cancer
     Dosage: 380 MG, ONCE
     Dates: start: 20220422, end: 20220422
  7. RALTITREXED [Concomitant]
     Active Substance: RALTITREXED
     Indication: Rectal cancer
     Dosage: 4 MG, ONCE
     Dates: start: 20220422, end: 20220422

REACTIONS (2)
  - Myelosuppression [Recovering/Resolving]
  - Off label use [None]

NARRATIVE: CASE EVENT DATE: 20220422
